FAERS Safety Report 5442813-3 (Version None)
Quarter: 2007Q3

REPORT INFORMATION
  Report Type: 
  Country: None (occurrence: None)
  Receive Date: 20070904
  Receipt Date: 20070817
  Transmission Date: 20080115
  Serious: No
  Sender: FDA-Public Use
  Company Number: US-BOEHRINGER INGELHEIM PHARMACEUTICALS, INC.-2007-BP-11573BP

PATIENT
  Sex: Female

DRUGS (6)
  1. SPIRIVA [Suspect]
     Indication: ASTHMA
     Route: 055
     Dates: start: 20070501
  2. MECLIZINE [Concomitant]
     Indication: MENIERE'S DISEASE
  3. TRIAMTERENE [Concomitant]
  4. LEVOTHROID [Concomitant]
     Indication: THYROID DISORDER
  5. CELEXA [Concomitant]
     Indication: DEPRESSION
  6. DARVOCET [Concomitant]
     Indication: PAIN

REACTIONS (2)
  - DRUG INEFFECTIVE [None]
  - DYSPNOEA [None]
